FAERS Safety Report 14313872 (Version 2)
Quarter: 2018Q3

REPORT INFORMATION
  Report Type: Spontaneous
  Country: JP (occurrence: JP)
  Receive Date: 20171221
  Receipt Date: 20180810
  Transmission Date: 20181010
  Serious: No
  Sender: FDA-Public Use
  Company Number: JP-JAZZ-2017-JP-016815

PATIENT

DRUGS (1)
  1. DEFIBROTIDE (NPB) [Suspect]
     Active Substance: DEFIBROTIDE SODIUM
     Indication: VENOOCCLUSIVE DISEASE
     Dosage: 25 MG/KG, QD
     Route: 042

REACTIONS (1)
  - No adverse event [Unknown]
